FAERS Safety Report 9109312 (Version 2)
Quarter: 2013Q2

REPORT INFORMATION
  Report Type: Spontaneous
  Country: US (occurrence: US)
  Receive Date: 20130222
  Receipt Date: 20130409
  Transmission Date: 20140414
  Serious: Yes (Other)
  Sender: FDA-Public Use
  Company Number: US-BAYER-2013-019092

PATIENT
  Age: 33 Year
  Sex: Female

DRUGS (2)
  1. MIRENA [Suspect]
     Indication: CONTRACEPTION
     Dosage: 20 MCG/24HR, CONT
     Route: 015
     Dates: start: 20081001
  2. ANTIBIOTICS [Concomitant]

REACTIONS (11)
  - Acne [None]
  - Abdominal distension [None]
  - Oligomenorrhoea [None]
  - Dysmenorrhoea [None]
  - Vomiting [None]
  - Fungal infection [None]
  - Ovarian cyst [None]
  - Device dislocation [None]
  - Oral infection [None]
  - Fungal infection [None]
  - Nausea [None]
